FAERS Safety Report 5934150-5 (Version None)
Quarter: 2008Q4

REPORT INFORMATION
  Report Type: 
  Country: None (occurrence: None)
  Receive Date: 20081029
  Receipt Date: 20081024
  Transmission Date: 20090506
  Serious: Yes (Hospitalization)
  Sender: FDA-Public Use
  Company Number: A0753982A

PATIENT
  Age: 57 Year
  Sex: Male
  Weight: 106.4 kg

DRUGS (7)
  1. AVANDIA [Suspect]
     Indication: DIABETES MELLITUS
     Dosage: 8MG PER DAY
     Route: 048
     Dates: start: 20040501, end: 20070117
  2. METFORMIN HYDROCHLORIDE [Concomitant]
  3. METOPROLOL TARTRATE [Concomitant]
  4. VASOTEC [Concomitant]
  5. PRINIVIL [Concomitant]
  6. RANITIDINE [Concomitant]
  7. LOPID [Concomitant]

REACTIONS (2)
  - CHEST PAIN [None]
  - MYOCARDIAL INFARCTION [None]
